FAERS Safety Report 9384723 (Version 1)
Quarter: 2013Q3

REPORT INFORMATION
  Report Type: Spontaneous
  Country: DK (occurrence: None)
  Receive Date: 20130701
  Receipt Date: 20130701
  Transmission Date: 20140515
  Serious: Yes (Hospitalization)
  Sender: FDA-Public Use
  Company Number: IPC201306-000244

PATIENT
  Age: 74 Year
  Sex: Female

DRUGS (8)
  1. ALLOPURINOL [Suspect]
  2. FUROSEMIDE [Suspect]
  3. METOPROLOL TARTRATE [Suspect]
  4. AMLODIPINE BESILATE [Suspect]
  5. MAGNESIUM OXIDE [Suspect]
  6. ESTROGEN [Suspect]
  7. WARFARIN (WARFARIN) (WARFARIN) [Suspect]
  8. SOLIFENACIN [Suspect]

REACTIONS (8)
  - Drug reaction with eosinophilia and systemic symptoms [None]
  - Pyrexia [None]
  - Malaise [None]
  - Confusional state [None]
  - Erythema [None]
  - Oedema [None]
  - Haemoglobin decreased [None]
  - Blood creatinine increased [None]
